FAERS Safety Report 7458610-3 (Version None)
Quarter: 2011Q2

REPORT INFORMATION
  Report Type: 
  Country: None (occurrence: None)
  Receive Date: 20110503
  Receipt Date: 20110503
  Transmission Date: 20111010
  Serious: No
  Sender: FDA-Public Use
  Company Number: None

PATIENT
  Age: 69 Year
  Sex: Male
  Weight: 75 kg

DRUGS (2)
  1. CEFTRIAXONE [Suspect]
     Dosage: 2 GM EVERY DAY IV
     Route: 042
     Dates: start: 20110421, end: 20110423
  2. VANCOMYCIN [Suspect]
     Dosage: 1000 GM BID IV
     Route: 042
     Dates: start: 20110421, end: 20110423

REACTIONS (6)
  - LINEAR IGA DISEASE [None]
  - DRUG HYPERSENSITIVITY [None]
  - RASH PRURITIC [None]
  - DERMATITIS BULLOUS [None]
  - SKIN EXFOLIATION [None]
  - BLISTER [None]
